FAERS Safety Report 6507313-8 (Version None)
Quarter: 2009Q4

REPORT INFORMATION
  Report Type: 
  Country: None (occurrence: None)
  Receive Date: 20091221
  Receipt Date: 20091217
  Transmission Date: 20100525
  Serious: Yes (Death, Hospitalization, Other)
  Sender: FDA-Public Use
  Company Number: PHEH2009US17873

PATIENT
  Sex: Male

DRUGS (14)
  1. EXJADE [Suspect]
     Dosage: 2500 MG DAILY
     Route: 048
  2. FOLIC ACID [Concomitant]
     Dosage: 1 MG, DAILY
     Route: 048
     Dates: start: 20091026
  3. LASIX [Concomitant]
     Dosage: 40 MG, DAILY
     Route: 048
     Dates: start: 20091015
  4. PROCHLORPERAZINE [Concomitant]
     Dosage: 10 MG, EVERY 6 HOURS AS NEEDED
     Route: 048
     Dates: start: 20090717
  5. FUROSEMIDE [Concomitant]
     Dosage: 20 MG, DAILY AS NEEDED
     Route: 048
     Dates: start: 20090710
  6. PRILOSEC [Concomitant]
     Dosage: 20 MG, TWO TIMES DAILY AS NEEDED
     Route: 048
     Dates: start: 20090302
  7. LIPITOR [Concomitant]
     Dosage: 20 MG, DAILY
     Dates: start: 20090212
  8. CARVEDILOL [Concomitant]
     Dosage: 6.25 MG, BID
     Route: 048
     Dates: start: 20090212
  9. PREDNISONE [Concomitant]
     Dosage: 5 MG, DAILY
     Route: 048
     Dates: start: 20090105
  10. SPIRIVA [Concomitant]
     Dosage: 18 UG, DAILY
  11. EXCEDRIN (MIGRAINE) [Concomitant]
  12. ASCORBIC ACID [Concomitant]
  13. MULTIVITAMIN PREPARATIONS WITH OR W/O MINERAL [Concomitant]
  14. BLOOD AND RELATED PRODUCTS [Concomitant]

REACTIONS (6)
  - ALANINE AMINOTRANSFERASE INCREASED [None]
  - CARDIAC ARREST [None]
  - SERUM FERRITIN INCREASED [None]
  - VENTRICULAR FIBRILLATION [None]
  - VENTRICULAR TACHYCARDIA [None]
  - VITAL FUNCTIONS ABNORMAL [None]
